FAERS Safety Report 7814739-9 (Version None)
Quarter: 2011Q4

REPORT INFORMATION
  Report Type: 
  Country: None (occurrence: None)
  Receive Date: 20111014
  Receipt Date: 20111005
  Transmission Date: 20120403
  Serious: Yes (Other)
  Sender: FDA-Public Use
  Company Number: US-BAXTER-2011BH031579

PATIENT
  Sex: Female

DRUGS (7)
  1. IMMUNE GLOBULIN INTRAVENOUS (HUMAN) [Suspect]
     Indication: OFF LABEL USE
     Route: 042
  2. ASPIRIN [Suspect]
     Indication: INFERTILITY
     Route: 065
  3. DEXAMETHASONE [Suspect]
     Indication: INFERTILITY
     Route: 065
  4. PROGESTERONE [Suspect]
     Indication: INFERTILITY
     Route: 065
  5. HUMIRA [Suspect]
     Indication: INFERTILITY
     Route: 065
  6. IMMUNE GLOBULIN INTRAVENOUS (HUMAN) [Suspect]
     Indication: INFERTILITY
     Route: 042
  7. ENOXAPARIN SODIUM [Suspect]
     Indication: INFLAMMATION
     Route: 065

REACTIONS (3)
  - ABORTION INDUCED [None]
  - DIGEORGE'S SYNDROME [None]
  - MATERNAL EXPOSURE DURING PREGNANCY [None]
